FAERS Safety Report 21412540 (Version 1)
Quarter: 2022Q4

REPORT INFORMATION
  Report Type: Spontaneous
  Country: US (occurrence: US)
  Receive Date: 20221005
  Receipt Date: 20221005
  Transmission Date: 20230113
  Serious: No
  Sender: FDA-Public Use
  Company Number: US-INTRA-CELLULAR THERAPIES, INC.-2022ICT00793

PATIENT
  Sex: Female
  Weight: 67.12 kg

DRUGS (6)
  1. CAPLYTA [Suspect]
     Active Substance: LUMATEPERONE
     Indication: Bipolar II disorder
     Dosage: 42 MG, 1X/DAY IN THE MORNING
     Route: 048
     Dates: start: 202202, end: 202206
  2. CAPLYTA [Suspect]
     Active Substance: LUMATEPERONE
     Dosage: 42 MG, 1X/DAY IN THE EVENING
     Route: 048
     Dates: start: 202206
  3. LEVOMEFOLATE CALCIUM [Concomitant]
     Active Substance: LEVOMEFOLATE CALCIUM
  4. HERBALS [Concomitant]
     Active Substance: HERBALS
  5. DIETARY SUPPLEMENT [Concomitant]
     Active Substance: DIETARY SUPPLEMENT
  6. VITAMIN K [Concomitant]
     Active Substance: PHYTONADIONE

REACTIONS (6)
  - Restless legs syndrome [Not Recovered/Not Resolved]
  - Feeling hot [Not Recovered/Not Resolved]
  - Body temperature increased [Not Recovered/Not Resolved]
  - Constipation [Recovered/Resolved]
  - Hangover [Recovering/Resolving]
  - Somnolence [Recovering/Resolving]

NARRATIVE: CASE EVENT DATE: 20220101
